FAERS Safety Report 9279274 (Version 1)
Quarter: 2013Q2

REPORT INFORMATION
  Report Type: Spontaneous
  Country: GB (occurrence: GB)
  Receive Date: 20130508
  Receipt Date: 20130508
  Transmission Date: 20140414
  Serious: Yes (Other)
  Sender: FDA-Public Use
  Company Number: GB-BAXTER-2013BAX016452

PATIENT
  Age: 5 Year
  Sex: Male

DRUGS (1)
  1. ADVATE 250 IU POWDER AND SOLVENT FOR SOLUTION FOR INJECTION [Suspect]
     Indication: FACTOR VIII DEFICIENCY
     Route: 065

REACTIONS (3)
  - Tonsillitis [Unknown]
  - Nasopharyngitis [Unknown]
  - Cough [Unknown]
